FAERS Safety Report 9265080 (Version 2)
Quarter: 2014Q3

REPORT INFORMATION
  Report Type: Report from Study
  Country: JP (occurrence: JP)
  Receive Date: 20130501
  Receipt Date: 20140714
  Transmission Date: 20150326
  Serious: No
  Sender: FDA-Public Use
  Company Number: JP-ASTELLAS-2012JP004162

PATIENT
  Age: 54 Year
  Sex: Female
  Weight: 45 kg

DRUGS (14)
  1. TACROLIMUS. [Suspect]
     Active Substance: TACROLIMUS
     Route: 048
     Dates: start: 20111117, end: 20120717
  2. PREDNISOLONE. [Concomitant]
     Active Substance: PREDNISOLONE
     Indication: LUPUS NEPHRITIS
     Route: 048
     Dates: end: 20121116
  3. BENET [Concomitant]
     Active Substance: RISEDRONIC ACID
     Indication: PROPHYLAXIS
     Route: 048
     Dates: end: 20110824
  4. TACROLIMUS. [Suspect]
     Active Substance: TACROLIMUS
     Indication: LUPUS NEPHRITIS
     Route: 048
     Dates: start: 20090401, end: 20090421
  5. TACROLIMUS. [Suspect]
     Active Substance: TACROLIMUS
     Route: 048
     Dates: start: 20091015, end: 20100825
  6. TACROLIMUS. [Suspect]
     Active Substance: TACROLIMUS
     Route: 048
     Dates: start: 20130418, end: 20130612
  7. PREDNISOLONE. [Concomitant]
     Active Substance: PREDNISOLONE
     Route: 048
     Dates: start: 20121117
  8. ALFAROL [Concomitant]
     Active Substance: ALFACALCIDOL
     Indication: PROPHYLAXIS
     Dosage: 0.25 ?G, ONCE DAILY
     Route: 048
     Dates: start: 20110825
  9. TACROLIMUS. [Suspect]
     Active Substance: TACROLIMUS
     Dosage: 0.5 MG, ONCE DAILY
     Dates: start: 20130613, end: 20131113
  10. TACROLIMUS. [Suspect]
     Active Substance: TACROLIMUS
     Route: 048
     Dates: start: 20090422, end: 20091014
  11. TACROLIMUS. [Suspect]
     Active Substance: TACROLIMUS
     Route: 048
     Dates: start: 20100826, end: 20111116
  12. TACROLIMUS. [Suspect]
     Active Substance: TACROLIMUS
     Dosage: 0.5 MG, ONCE DAILY
     Route: 048
     Dates: start: 20120718, end: 20130417
  13. TACROLIMUS. [Suspect]
     Active Substance: TACROLIMUS
     Dates: start: 20131114
  14. MERCAZOLE [Concomitant]
     Active Substance: CARBIMAZOLE
     Indication: HYPERTHYROIDISM
     Route: 048

REACTIONS (1)
  - Liver disorder [Recovered/Resolved]

NARRATIVE: CASE EVENT DATE: 20111116
